FAERS Safety Report 14880106 (Version 1)
Quarter: 2018Q2

REPORT INFORMATION
  Report Type: Spontaneous
  Country: KZ (occurrence: KZ)
  Receive Date: 20180511
  Receipt Date: 20180511
  Transmission Date: 20180711
  Serious: Yes (Other)
  Sender: FDA-Public Use
  Company Number: PHHY2018KZ003816

PATIENT
  Age: 50 Year
  Sex: Male
  Weight: 53 kg

DRUGS (6)
  1. INSULIN GLARGINE [Concomitant]
     Active Substance: INSULIN GLARGINE
     Indication: DIABETES MELLITUS
     Dosage: UNK
     Route: 065
     Dates: start: 20171010
  2. PIRAZINAMIDA [Suspect]
     Active Substance: PYRAZINAMIDE
     Indication: TUBERCULOSIS
     Dosage: 1600 MG, QD
     Route: 048
     Dates: start: 20171101, end: 20171213
  3. CLOFAZIMINE [Suspect]
     Active Substance: CLOFAZIMINE
     Indication: TUBERCULOSIS
     Dosage: 100 MG, QD
     Route: 048
     Dates: start: 20171101, end: 20171206
  4. CLOFAZIMINE [Suspect]
     Active Substance: CLOFAZIMINE
     Dosage: UNK
     Route: 048
     Dates: start: 20171212, end: 20171219
  5. DELAMANID [Suspect]
     Active Substance: DELAMANID
     Indication: TUBERCULOSIS
     Dosage: 100 MG, BID
     Route: 048
     Dates: start: 20171101, end: 20171219
  6. MOXIFLOXACIN. [Suspect]
     Active Substance: MOXIFLOXACIN
     Indication: TUBERCULOSIS
     Dosage: 400 MG, QD
     Route: 048
     Dates: start: 20171101, end: 20171219

REACTIONS (10)
  - Aspartate aminotransferase increased [Unknown]
  - Rash pruritic [Unknown]
  - Dermatitis exfoliative generalised [Recovered/Resolved]
  - Alanine aminotransferase increased [Unknown]
  - Drug intolerance [Unknown]
  - Rash generalised [Unknown]
  - Oedema peripheral [Unknown]
  - Hyperaemia [Unknown]
  - Dermatitis allergic [Unknown]
  - Skin exfoliation [Unknown]

NARRATIVE: CASE EVENT DATE: 20171120
